FAERS Safety Report 12264845 (Version 1)
Quarter: 2016Q2

REPORT INFORMATION
  Report Type: Spontaneous
  Country: US (occurrence: US)
  Receive Date: 20160413
  Receipt Date: 20160413
  Transmission Date: 20160815
  Serious: No
  Sender: FDA-Public Use
  Company Number: US-JNJFOC-20160302851

PATIENT
  Age: 79 Year
  Sex: Male
  Weight: 83.92 kg

DRUGS (2)
  1. TYLENOL 8 HR ARTHRITIS PAIN [Suspect]
     Active Substance: ACETAMINOPHEN
     Route: 065
  2. TYLENOL 8 HR ARTHRITIS PAIN [Suspect]
     Active Substance: ACETAMINOPHEN
     Indication: TOOTHACHE
     Dosage: 2 TABLETS EVERY 8 HOURS
     Route: 065

REACTIONS (4)
  - Expired product administered [Unknown]
  - Product label issue [Unknown]
  - Product commingling [Unknown]
  - Therapeutic response unexpected [Unknown]
